FAERS Safety Report 13799786 (Version 1)
Quarter: 2017Q3

REPORT INFORMATION
  Report Type: Spontaneous
  Country: US (occurrence: US)
  Receive Date: 20170727
  Receipt Date: 20170727
  Transmission Date: 20171127
  Serious: No
  Sender: FDA-Public Use
  Company Number: None

PATIENT
  Age: 63 Year
  Sex: Female
  Weight: 112.5 kg

DRUGS (10)
  1. SIMVASTATIN. [Concomitant]
     Active Substance: SIMVASTATIN
  2. FLECAINIDE [Concomitant]
     Active Substance: FLECAINIDE
  3. GABAPENTIN. [Concomitant]
     Active Substance: GABAPENTIN
  4. LEVOTHYROXINE. [Concomitant]
     Active Substance: LEVOTHYROXINE
  5. ELIQUIS [Concomitant]
     Active Substance: APIXABAN
  6. VITAMIN D [Concomitant]
     Active Substance: CHOLECALCIFEROL
  7. COPAXONE [Suspect]
     Active Substance: GLATIRAMER ACETATE
     Indication: MULTIPLE SCLEROSIS
     Dosage: ?          QUANTITY:1 INJECTION(S);OTHER FREQUENCY:3 TIMES A WEEK;?
     Route: 030
     Dates: start: 20170708, end: 20170714
  8. TRIAMTERENCE HCTZ [Concomitant]
  9. CARVEDILOL. [Concomitant]
     Active Substance: CARVEDILOL
  10. ESCITALOPRAM [Concomitant]
     Active Substance: ESCITALOPRAM OXALATE

REACTIONS (5)
  - Paraesthesia [None]
  - Influenza like illness [None]
  - Headache [None]
  - Dyspnoea [None]
  - Dysphagia [None]

NARRATIVE: CASE EVENT DATE: 20170714
